FAERS Safety Report 13414231 (Version 1)
Quarter: 2017Q2

REPORT INFORMATION
  Report Type: Spontaneous
  Country: US (occurrence: US)
  Receive Date: 20170406
  Receipt Date: 20170406
  Transmission Date: 20170830
  Serious: No
  Sender: FDA-Public Use
  Company Number: US-JNJFOC-20170123765

PATIENT
  Sex: Female
  Weight: 62.6 kg

DRUGS (4)
  1. PATRIOT RISPERIDONE ORO-DISPERSIBLE [Suspect]
     Active Substance: RISPERIDONE
     Indication: AUTISM SPECTRUM DISORDER
     Route: 048
     Dates: start: 2007
  2. PATRIOT RISPERIDONE ORO-DISPERSIBLE [Suspect]
     Active Substance: RISPERIDONE
     Indication: AUTISM SPECTRUM DISORDER
     Route: 048
     Dates: start: 2015
  3. PATRIOT RISPERIDONE ORO-DISPERSIBLE [Suspect]
     Active Substance: RISPERIDONE
     Indication: AUTISM SPECTRUM DISORDER
     Dosage: 1 TABLET OF 2 MG AND HALF TABLET OF 2 MG (THAT IS, EQUAL TO 1 MG). THUS, A TOTAL OF 3 MG.
     Route: 048
  4. RISPERIDONE. [Suspect]
     Active Substance: RISPERIDONE
     Indication: AUTISM SPECTRUM DISORDER
     Dosage: 1 TABLET OF 2 MG AND HALF TABLET OF 2 MG (THAT IS, EQUAL TO 1 MG). THUS, A TOTAL OF 3 MG.
     Route: 065

REACTIONS (4)
  - Abnormal behaviour [Unknown]
  - Wrong technique in product usage process [Unknown]
  - Agitation [Unknown]
  - Acne [Not Recovered/Not Resolved]

NARRATIVE: CASE EVENT DATE: 2017
